FAERS Safety Report 16919962 (Version 4)
Quarter: 2020Q4

REPORT INFORMATION
  Report Type: Other
  Country: AU (occurrence: AU)
  Receive Date: 20191015
  Receipt Date: 20201027
  Transmission Date: 20210113
  Serious: Yes (Other)
  Sender: FDA-Public Use
  Company Number: AU-ROCHE-2434957

PATIENT
  Age: 60 Year
  Sex: Female

DRUGS (1)
  1. OCREVUS [Suspect]
     Active Substance: OCRELIZUMAB
     Indication: RELAPSING-REMITTING MULTIPLE SCLEROSIS
     Route: 041
     Dates: start: 20190403

REACTIONS (16)
  - Fatigue [Not Recovered/Not Resolved]
  - Spinal column injury [Unknown]
  - Nausea [Recovered/Resolved]
  - Dysphonia [Not Recovered/Not Resolved]
  - Insomnia [Recovered/Resolved]
  - Cough [Recovered/Resolved]
  - Laryngeal erythema [Unknown]
  - Viral infection [Unknown]
  - Balance disorder [Not Recovered/Not Resolved]
  - Haemoglobin increased [Not Recovered/Not Resolved]
  - Palpitations [Recovered/Resolved]
  - Throat irritation [Not Recovered/Not Resolved]
  - Malaise [Unknown]
  - Fall [Unknown]
  - Head injury [Unknown]
  - Intervertebral disc protrusion [Not Recovered/Not Resolved]

NARRATIVE: CASE EVENT DATE: 20190403
